FAERS Safety Report 23108871 (Version 1)
Quarter: 2023Q4

REPORT INFORMATION
  Report Type: Other
  Country: US (occurrence: None)
  Receive Date: 20231026
  Receipt Date: 20231026
  Transmission Date: 20240109
  Serious: Yes (Other)
  Sender: FDA-Public Use
  Company Number: US-ROCHE-3446083

PATIENT
  Age: 74 Year
  Sex: Female

DRUGS (1)
  1. TENECTEPLASE [Suspect]
     Active Substance: TENECTEPLASE
     Indication: Ischaemic stroke
     Dosage: NOT TO EXCEED 25 MG TOTAL TREATMENT DOSE
     Route: 042

REACTIONS (2)
  - Haemorrhage intracranial [Unknown]
  - Off label use [Unknown]
